FAERS Safety Report 23500195 (Version 1)
Quarter: 2024Q1

REPORT INFORMATION
  Report Type: Spontaneous
  Country: US (occurrence: US)
  Receive Date: 20240208
  Receipt Date: 20240208
  Transmission Date: 20240409
  Serious: No
  Sender: FDA-Public Use
  Company Number: US-ELI_LILLY_AND_COMPANY-US202402003699

PATIENT
  Age: 61 Year
  Sex: Female

DRUGS (18)
  1. MOUNJARO [Suspect]
     Active Substance: TIRZEPATIDE
     Indication: Glucose tolerance impaired
     Dosage: 10 MG, UNKNOWN
     Route: 058
     Dates: start: 202301
  2. MOUNJARO [Suspect]
     Active Substance: TIRZEPATIDE
     Indication: Glucose tolerance impaired
     Dosage: 10 MG, UNKNOWN
     Route: 058
     Dates: start: 202301
  3. MOUNJARO [Suspect]
     Active Substance: TIRZEPATIDE
     Indication: Glucose tolerance impaired
     Dosage: 10 MG, UNKNOWN
     Route: 058
     Dates: start: 202301
  4. MOUNJARO [Suspect]
     Active Substance: TIRZEPATIDE
     Indication: Glucose tolerance impaired
     Dosage: 10 MG, UNKNOWN
     Route: 058
     Dates: start: 202301
  5. MOUNJARO [Suspect]
     Active Substance: TIRZEPATIDE
     Indication: Autoimmune thyroiditis
  6. MOUNJARO [Suspect]
     Active Substance: TIRZEPATIDE
     Indication: Autoimmune thyroiditis
  7. MOUNJARO [Suspect]
     Active Substance: TIRZEPATIDE
     Indication: Autoimmune thyroiditis
  8. MOUNJARO [Suspect]
     Active Substance: TIRZEPATIDE
     Indication: Autoimmune thyroiditis
  9. MOUNJARO [Suspect]
     Active Substance: TIRZEPATIDE
     Indication: Weight control
  10. MOUNJARO [Suspect]
     Active Substance: TIRZEPATIDE
     Indication: Weight control
  11. MOUNJARO [Suspect]
     Active Substance: TIRZEPATIDE
     Indication: Weight control
  12. MOUNJARO [Suspect]
     Active Substance: TIRZEPATIDE
     Indication: Weight control
  13. MOUNJARO [Suspect]
     Active Substance: TIRZEPATIDE
     Indication: Arthropathy
  14. MOUNJARO [Suspect]
     Active Substance: TIRZEPATIDE
     Indication: Arthropathy
  15. MOUNJARO [Suspect]
     Active Substance: TIRZEPATIDE
     Indication: Arthropathy
  16. MOUNJARO [Suspect]
     Active Substance: TIRZEPATIDE
     Indication: Arthropathy
  17. METFORMIN [Concomitant]
     Active Substance: METFORMIN HYDROCHLORIDE
     Indication: Glucose tolerance impaired
  18. METFORMIN [Concomitant]
     Active Substance: METFORMIN HYDROCHLORIDE
     Indication: Autoimmune thyroiditis

REACTIONS (2)
  - Extra dose administered [Unknown]
  - Off label use [Unknown]

NARRATIVE: CASE EVENT DATE: 20230101
